FAERS Safety Report 15463293 (Version 3)
Quarter: 2018Q4

REPORT INFORMATION
  Report Type: Spontaneous
  Country: US (occurrence: US)
  Receive Date: 20181004
  Receipt Date: 20181210
  Transmission Date: 20190204
  Serious: No
  Sender: FDA-Public Use
  Company Number: PHEH2018US040497

PATIENT
  Sex: Male

DRUGS (2)
  1. AFINITOR [Suspect]
     Active Substance: EVEROLIMUS
     Indication: COLON NEOPLASM
     Dosage: UNK
     Route: 065
  2. SANDOSTATIN [Suspect]
     Active Substance: OCTREOTIDE ACETATE
     Indication: PRODUCT USED FOR UNKNOWN INDICATION
     Dosage: UNK
     Route: 065

REACTIONS (11)
  - Red cell distribution width increased [Unknown]
  - Steatorrhoea [Unknown]
  - Product use in unapproved indication [Unknown]
  - Blood glucose increased [Unknown]
  - Alanine aminotransferase increased [Unknown]
  - Blood chromogranin A increased [Unknown]
  - Bowel movement irregularity [Recovering/Resolving]
  - Mean cell volume decreased [Unknown]
  - Headache [Unknown]
  - Mean cell haemoglobin decreased [Unknown]
  - Aspartate aminotransferase increased [Unknown]
